FAERS Safety Report 7909747-3 (Version None)
Quarter: 2011Q4

REPORT INFORMATION
  Report Type: 
  Country: None (occurrence: None)
  Receive Date: 20111111
  Receipt Date: 20111108
  Transmission Date: 20120403
  Serious: Yes (Hospitalization)
  Sender: FDA-Public Use
  Company Number: JP-EISAI INC-E2020-09957-SPO-JP

PATIENT
  Age: 77 Year
  Sex: Male
  Weight: 53.2 kg

DRUGS (4)
  1. ARICEPT [Suspect]
     Route: 048
     Dates: start: 20110914
  2. ARICEPT [Suspect]
     Route: 048
     Dates: start: 20110824, end: 20110912
  3. ARICEPT [Suspect]
     Indication: DEMENTIA ALZHEIMER'S TYPE
     Route: 048
     Dates: start: 20100326, end: 20100408
  4. ARICEPT [Suspect]
     Route: 048
     Dates: start: 20100409, end: 20110823

REACTIONS (2)
  - ALTERED STATE OF CONSCIOUSNESS [None]
  - CONVULSION [None]
